FAERS Safety Report 18077560 (Version 1)
Quarter: 2020Q3

REPORT INFORMATION
  Report Type: Spontaneous
  Country: BR (occurrence: BR)
  Receive Date: 20200727
  Receipt Date: 20200727
  Transmission Date: 20201103
  Serious: Yes (Hospitalization)
  Sender: FDA-Public Use
  Company Number: BR-BIOGEN-2020BI00901359

PATIENT
  Sex: Female

DRUGS (1)
  1. TECFIDERA [Suspect]
     Active Substance: DIMETHYL FUMARATE
     Indication: PATERNAL EXPOSURE TIMING UNSPECIFIED
     Route: 064
     Dates: start: 20161005

REACTIONS (3)
  - General symptom [Unknown]
  - Pneumothorax [Unknown]
  - Paternal exposure before pregnancy [Recovered/Resolved]
